FAERS Safety Report 7367074-X (Version None)
Quarter: 2011Q1

REPORT INFORMATION
  Report Type: 
  Country: None (occurrence: None)
  Receive Date: 20110322
  Receipt Date: 20110106
  Transmission Date: 20110831
  Serious: No
  Sender: FDA-Public Use
  Company Number: US-TYCO HEALTHCARE/MALLINCKRODT-T201002462

PATIENT
  Sex: Female

DRUGS (5)
  1. CLIMARA [Concomitant]
     Dosage: UNK
  2. LYRICA [Concomitant]
  3. METHADONE [Suspect]
     Dosage: 10 MG, BID
  4. METHYLPREDNISOLONE [Concomitant]
  5. FENTANYL [Concomitant]

REACTIONS (4)
  - BALANCE DISORDER [None]
  - INJURY [None]
  - THINKING ABNORMAL [None]
  - FALL [None]
